FAERS Safety Report 20141867 (Version 2)
Quarter: 2022Q1

REPORT INFORMATION
  Report Type: Report from Study
  Country: US (occurrence: US)
  Receive Date: 20211202
  Receipt Date: 20220120
  Transmission Date: 20220423
  Serious: Yes (Other)
  Sender: FDA-Public Use
  Company Number: US-NOVARTISPH-NVSC2018US021105

PATIENT
  Sex: Male

DRUGS (17)
  1. LUTATHERA [Suspect]
     Active Substance: LUTETIUM OXODOTREOTIDE LU-177
     Indication: Pancreatic carcinoma
     Route: 065
  2. OCTREOTIDE [Suspect]
     Active Substance: OCTREOTIDE
     Indication: Product used for unknown indication
     Dosage: UNK
     Route: 065
     Dates: end: 20180904
  3. OCTREOTIDE [Suspect]
     Active Substance: OCTREOTIDE
  4. OCTREOTIDE [Suspect]
     Active Substance: OCTREOTIDE
  5. ONDANSETRON [Suspect]
     Active Substance: ONDANSETRON
     Indication: Product used for unknown indication
     Route: 065
  6. LISINOPRIL [Suspect]
     Active Substance: LISINOPRIL
     Indication: Product used for unknown indication
     Route: 065
  7. DAPAGLIFLOZIN [Suspect]
     Active Substance: DAPAGLIFLOZIN
     Indication: Product used for unknown indication
     Route: 065
  8. ACTOS [Concomitant]
     Active Substance: PIOGLITAZONE HYDROCHLORIDE
     Indication: Product used for unknown indication
     Route: 065
  9. JANUVIA [Concomitant]
     Active Substance: SITAGLIPTIN PHOSPHATE
     Indication: Product used for unknown indication
     Route: 065
  10. LIPITOR [Concomitant]
     Active Substance: ATORVASTATIN CALCIUM
     Indication: Product used for unknown indication
     Route: 065
  11. ASPIRIN [Concomitant]
     Active Substance: ASPIRIN
     Indication: Product used for unknown indication
     Route: 065
  12. DRONABINOL [Concomitant]
     Active Substance: DRONABINOL
     Indication: Product used for unknown indication
     Route: 065
  13. LIPASE [Concomitant]
     Active Substance: LIPASE
     Indication: Product used for unknown indication
     Route: 065
  14. PROTEASE [Concomitant]
     Active Substance: PROTEASE
     Indication: Product used for unknown indication
     Route: 065
  15. AMYLASE [Concomitant]
     Active Substance: AMYLASE
     Indication: Product used for unknown indication
     Route: 065
  16. METFORMIN [Concomitant]
     Active Substance: METFORMIN HYDROCHLORIDE
     Indication: Product used for unknown indication
     Route: 065
  17. SITAGLIPTIN [Concomitant]
     Active Substance: SITAGLIPTIN
     Indication: Product used for unknown indication
     Route: 065

REACTIONS (7)
  - Diabetes mellitus [Unknown]
  - Paraneoplastic syndrome [Unknown]
  - Urinary incontinence [Unknown]
  - Gait disturbance [Unknown]
  - Hypertension [Unknown]
  - Asthenia [Unknown]
  - Fatigue [Unknown]
